FAERS Safety Report 8317685-X (Version None)
Quarter: 2012Q2

REPORT INFORMATION
  Report Type: 
  Country: None (occurrence: None)
  Receive Date: 20120427
  Receipt Date: 20090707
  Transmission Date: 20120825
  Serious: No
  Sender: FDA-Public Use
  Company Number: US-TEVA-2009008233

PATIENT
  Sex: Female

DRUGS (4)
  1. NUVIGIL [Suspect]
     Indication: NARCOLEPSY
     Dosage: 150 MILLIGRAM;
     Route: 048
     Dates: start: 20090612, end: 20090623
  2. NUVIGIL [Suspect]
     Dosage: 250 MILLIGRAM;
     Route: 048
     Dates: start: 20090624
  3. SYNTHROID [Concomitant]
     Indication: HYPOTHYROIDISM
     Route: 048
     Dates: start: 20060101
  4. TYLENOL ES [Concomitant]
     Indication: HYPOTHYROIDISM
     Dosage: 500 MICROGRAM;
     Route: 048

REACTIONS (6)
  - ARTHRALGIA [None]
  - SKIN REACTION [None]
  - ERYTHEMA [None]
  - JOINT SWELLING [None]
  - STOMATITIS [None]
  - HEADACHE [None]
